FAERS Safety Report 16468162 (Version 16)
Quarter: 2022Q3

REPORT INFORMATION
  Report Type: Spontaneous
  Country: GB (occurrence: GB)
  Receive Date: 20190624
  Receipt Date: 20220809
  Transmission Date: 20221026
  Serious: Yes (Hospitalization, Congenital Anomaly, Other)
  Sender: FDA-Public Use
  Company Number: GB-MERCK-1007GBR00039

PATIENT
  Age: 34 Year
  Sex: Female

DRUGS (26)
  1. LAMIVUDINE [Suspect]
     Active Substance: LAMIVUDINE
     Indication: HIV infection
     Dosage: 300 MILLIGRAM, ONCE A DAY
     Route: 048
     Dates: start: 20090101, end: 20100610
  2. LAMIVUDINE [Suspect]
     Active Substance: LAMIVUDINE
     Indication: Antiviral treatment
     Dosage: 300 MILLIGRAM, ONCE A DAY
     Route: 048
     Dates: start: 20100610
  3. LAMIVUDINE [Suspect]
     Active Substance: LAMIVUDINE
     Indication: Antiretroviral therapy
     Dosage: 300 MILLIGRAM, ONCE A DAY
     Route: 065
  4. NEVIRAPINE [Suspect]
     Active Substance: NEVIRAPINE
     Indication: Antiretroviral therapy
     Dosage: 400 MILLIGRAM, ONCE A DAY
     Route: 048
     Dates: start: 20090101, end: 20100610
  5. TENOFOVIR DISOPROXIL [Suspect]
     Active Substance: TENOFOVIR DISOPROXIL
     Indication: HIV infection
     Dosage: UNK
     Route: 048
  6. TENOFOVIR DISOPROXIL [Suspect]
     Active Substance: TENOFOVIR DISOPROXIL
     Indication: Antiviral treatment
     Dosage: 300 MILLIGRAM, ONCE A DAY
     Route: 048
     Dates: start: 20100610
  7. LOPINAVIR\RITONAVIR [Suspect]
     Active Substance: LOPINAVIR\RITONAVIR
     Indication: HIV infection
     Dosage: UNK
     Route: 048
     Dates: start: 20100610
  8. LOPINAVIR\RITONAVIR [Suspect]
     Active Substance: LOPINAVIR\RITONAVIR
     Indication: Antiviral treatment
  9. ISENTRESS [Suspect]
     Active Substance: RALTEGRAVIR POTASSIUM
     Indication: HIV infection
     Dosage: 400 MILLIGRAM, TWO TIMES A DAY
     Route: 048
     Dates: start: 20100610
  10. ISENTRESS [Suspect]
     Active Substance: RALTEGRAVIR POTASSIUM
     Dosage: 800 MILLIGRAM, FOUR TIMES/DAY
     Route: 048
     Dates: start: 20100610
  11. ISENTRESS [Suspect]
     Active Substance: RALTEGRAVIR POTASSIUM
     Dosage: 3200 MILLIGRAM, ONCE A DAY (800 MILLIGRAM, QID. GESTATION PERIOD - 37 WEEKS)
     Route: 048
     Dates: start: 20100610
  12. KALETRA [Suspect]
     Active Substance: LOPINAVIR\RITONAVIR
     Indication: HIV infection
     Dosage: UNK
     Route: 048
     Dates: start: 20100610
  13. KALETRA [Suspect]
     Active Substance: LOPINAVIR\RITONAVIR
     Indication: Antiviral treatment
     Dosage: UNK
     Route: 065
     Dates: start: 20210610
  14. LOPINAVIR\RITONAVIR [Suspect]
     Active Substance: LOPINAVIR\RITONAVIR
     Indication: Product used for unknown indication
     Dosage: UNK
     Route: 048
     Dates: start: 20210610
  15. RALTEGRAVIR POTASSIUM [Suspect]
     Active Substance: RALTEGRAVIR POTASSIUM
     Indication: HIV infection
     Dosage: 800 MILLIGRAM, ONCE A DAY
     Route: 048
     Dates: start: 20100110
  16. RALTEGRAVIR POTASSIUM [Suspect]
     Active Substance: RALTEGRAVIR POTASSIUM
     Dosage: 1 DOSAGE FORM, ONCE A DAY, (GESTATION PERIOD AT TIME OF EXPOSURE: 37 WEEKS)
     Route: 048
     Dates: start: 20100610
  17. RALTEGRAVIR POTASSIUM [Suspect]
     Active Substance: RALTEGRAVIR POTASSIUM
     Dosage: 800 MILLIGRAM, ONCE A DAY
     Route: 048
     Dates: start: 20100610
  18. VIRAMUNE [Suspect]
     Active Substance: NEVIRAPINE
     Indication: HIV infection
     Dosage: 400 MILLIGRAM, ONCE A DAY
     Route: 048
     Dates: start: 20090101, end: 20100610
  19. VIRAMUNE [Suspect]
     Active Substance: NEVIRAPINE
     Indication: Antiviral treatment
  20. VIRAMUNE [Suspect]
     Active Substance: NEVIRAPINE
     Indication: Antiretroviral therapy
  21. VIREAD [Suspect]
     Active Substance: TENOFOVIR DISOPROXIL FUMARATE
     Indication: HIV infection
     Dosage: 5700 MILLIGRAM
     Route: 048
  22. VIREAD [Suspect]
     Active Substance: TENOFOVIR DISOPROXIL FUMARATE
     Indication: Antiviral treatment
     Dosage: 300 MILLIGRAM, ONCE A DAY
     Route: 048
     Dates: start: 20100610
  23. VIREAD [Suspect]
     Active Substance: TENOFOVIR DISOPROXIL FUMARATE
     Indication: Antiretroviral therapy
  24. ZIDOVUDINE [Suspect]
     Active Substance: ZIDOVUDINE
     Indication: HIV infection
     Dosage: 600 MILLIGRAM, ONCE A DAY
     Route: 048
     Dates: start: 20090110, end: 20100610
  25. ZIDOVUDINE [Suspect]
     Active Substance: ZIDOVUDINE
     Indication: Antiviral treatment
     Dosage: 800 MILLIGRAM, ONCE A DAY
     Route: 048
     Dates: start: 20100610
  26. ZIDOVUDINE [Suspect]
     Active Substance: ZIDOVUDINE
     Indication: Antiretroviral therapy

REACTIONS (6)
  - Aspartate aminotransferase increased [Unknown]
  - Caesarean section [Unknown]
  - Alanine aminotransferase increased [Unknown]
  - Hepatic cytolysis [Unknown]
  - Maternal exposure during pregnancy [Recovered/Resolved]
  - Exposure during pregnancy [Recovered/Resolved]

NARRATIVE: CASE EVENT DATE: 20100629
